FAERS Safety Report 6049546-3 (Version None)
Quarter: 2009Q1

REPORT INFORMATION
  Report Type: 
  Country: None (occurrence: None)
  Receive Date: 20090121
  Receipt Date: 20090115
  Transmission Date: 20090719
  Serious: Yes (Death, Other)
  Sender: FDA-Public Use
  Company Number: 2009-00183

PATIENT
  Age: 78 Year
  Sex: Female

DRUGS (12)
  1. VELCADE [Suspect]
     Indication: MULTIPLE MYELOMA
     Dates: start: 20080328, end: 20080725
  2. THALIDOMIDE [Suspect]
     Indication: MULTIPLE MYELOMA
     Dosage: 50 MG, ORAL; ORAL; 100 MG, ORAL; 50 MG, ORAL
     Route: 048
     Dates: start: 20070401, end: 20070101
  3. THALIDOMIDE [Suspect]
     Indication: MULTIPLE MYELOMA
     Dosage: 50 MG, ORAL; ORAL; 100 MG, ORAL; 50 MG, ORAL
     Route: 048
     Dates: start: 20070301, end: 20070301
  4. THALIDOMIDE [Suspect]
     Indication: MULTIPLE MYELOMA
     Dosage: 50 MG, ORAL; ORAL; 100 MG, ORAL; 50 MG, ORAL
     Route: 048
     Dates: start: 20070322, end: 20070401
  5. THALIDOMIDE [Suspect]
     Indication: MULTIPLE MYELOMA
     Dosage: 50 MG, ORAL; ORAL; 100 MG, ORAL; 50 MG, ORAL
     Route: 048
     Dates: start: 20070705, end: 20080201
  6. OXYCODONE HCL [Concomitant]
  7. CELEXA [Concomitant]
  8. ZOPICLONE (ZOPICLONE) [Concomitant]
  9. MELPHALAN [Concomitant]
  10. PREDNISOLONE [Concomitant]
  11. OXYCONTIN [Concomitant]
  12. ENOXAPARIN SODIUM (HEPATIN-FRACTION, SODIUM SALT) [Concomitant]

REACTIONS (6)
  - HYPERCALCAEMIA [None]
  - MALIGNANT NEOPLASM PROGRESSION [None]
  - MULTIPLE MYELOMA [None]
  - NEUROPATHY PERIPHERAL [None]
  - OEDEMA PERIPHERAL [None]
  - SOMNOLENCE [None]
